FAERS Safety Report 4569407-6 (Version None)
Quarter: 2005Q1

REPORT INFORMATION
  Report Type: 
  Country: None (occurrence: None)
  Receive Date: 20050203
  Receipt Date: 20040813
  Transmission Date: 20050727
  Serious: Yes (Death)
  Sender: FDA-Public Use
  Company Number: US-BRISTOL-MYERS SQUIBB COMPANY-12670634

PATIENT
  Age: 37 Year
  Sex: Male

DRUGS (9)
  1. BLEOMYCIN SULFATE [Suspect]
     Indication: TESTIS CANCER
     Dosage: START DATE:  09-JUN-2003 (270 UNITS)
     Route: 042
     Dates: start: 20030827, end: 20030827
  2. CISPLATIN [Concomitant]
     Dates: start: 20030609, end: 20030827
  3. ETOPOSIDE [Concomitant]
     Dates: start: 20030609, end: 20030827
  4. MORPHINE SULFATE [Concomitant]
     Dates: start: 20030609, end: 20030827
  5. AZITHROMYCIN [Concomitant]
  6. TRIMETHOPRIM + SULFAMETHOXAZOLE [Concomitant]
  7. SOLU-MEDROL [Concomitant]
  8. LOVENOX [Concomitant]
  9. OXYGEN [Concomitant]

REACTIONS (1)
  - PULMONARY FIBROSIS [None]
